FAERS Safety Report 7586210-3 (Version None)
Quarter: 2011Q2

REPORT INFORMATION
  Report Type: 
  Country: None (occurrence: None)
  Receive Date: 20110630
  Receipt Date: 20110630
  Transmission Date: 20111010
  Serious: Yes (Death)
  Sender: FDA-Public Use
  Company Number: None

PATIENT
  Sex: Female
  Weight: 102.7 kg

DRUGS (13)
  1. CALCIUM GLUCONATE [Concomitant]
  2. CELEXA [Concomitant]
  3. SIMETHICONE [Concomitant]
  4. AMANTADINE HCL [Concomitant]
  5. LASIX [Concomitant]
  6. LISINOPRIL [Concomitant]
  7. MUCINEX [Concomitant]
  8. AMPYRA [Suspect]
     Indication: MULTIPLE SCLEROSIS
     Dosage: 10MG TWICE DAILY
     Dates: start: 20110611, end: 20110615
  9. CRANBERRY TABS [Concomitant]
  10. BACLOFEN [Concomitant]
  11. ASPIRIN [Concomitant]
  12. ASCORBIC ACID [Concomitant]
  13. ZYRTEC [Concomitant]

REACTIONS (3)
  - UNRESPONSIVE TO STIMULI [None]
  - PULMONARY EMBOLISM [None]
  - HYPOXIC-ISCHAEMIC ENCEPHALOPATHY [None]
